FAERS Safety Report 9410768 (Version 2)
Quarter: 2013Q3

REPORT INFORMATION
  Report Type: Spontaneous
  Country: US (occurrence: US)
  Receive Date: 20130719
  Receipt Date: 20130926
  Transmission Date: 20140515
  Serious: Yes (Hospitalization, Other)
  Sender: FDA-Public Use
  Company Number: US-ELI_LILLY_AND_COMPANY-US201305009491

PATIENT
  Sex: Female
  Weight: 51.7 kg

DRUGS (16)
  1. HUMALOG LISPRO [Suspect]
     Indication: TYPE 1 DIABETES MELLITUS
     Dosage: UNK UNK, QD
     Route: 058
     Dates: start: 1998
  2. HUMALOG LISPRO [Suspect]
     Dosage: 40 U, QD
     Route: 058
  3. EFFIENT [Concomitant]
     Dosage: 10 MG, QD
     Route: 048
  4. SYNTHROID [Concomitant]
     Dosage: 25 UG, EACH MORNING
  5. SYNTHROID [Concomitant]
     Dosage: 75 UG, QD
  6. SYNTHROID [Concomitant]
     Dosage: 50 UG, QD
     Route: 048
  7. SYNTHROID [Concomitant]
     Dosage: 25 UG, QD
  8. BABY ASPIRIN [Concomitant]
     Dosage: 81 MG, QD
     Route: 048
  9. LEXAPRO [Concomitant]
     Dosage: 10 MG, QD
     Route: 048
  10. ERYTHROMYCIN [Concomitant]
     Dosage: 500 MG, TID
     Route: 048
  11. LANSOPRAZOLE [Concomitant]
     Dosage: 30 MG, QD
     Route: 048
  12. BYSTOLIC [Concomitant]
  13. LISINOPRIL [Concomitant]
     Dosage: 5 MG, QD
     Route: 048
  14. PRAVASTATIN [Concomitant]
     Dosage: 20 MG, EACH EVENING
     Route: 048
  15. ATIVAN [Concomitant]
     Dosage: 0.5 MG, PRN
  16. CALCIUM [Concomitant]

REACTIONS (13)
  - Coronary artery occlusion [Unknown]
  - Carotid artery occlusion [Unknown]
  - Arterial occlusive disease [Unknown]
  - Blood potassium increased [Unknown]
  - Fatigue [Unknown]
  - Dyspnoea [Unknown]
  - Neuropathic arthropathy [Unknown]
  - Foot fracture [Unknown]
  - Nephropathy [Unknown]
  - Nephrolithiasis [Unknown]
  - Hypothyroidism [Unknown]
  - Wolff-Parkinson-White syndrome [Unknown]
  - Glycosylated haemoglobin increased [Unknown]
